FAERS Safety Report 24879726 (Version 1)
Quarter: 2025Q1

REPORT INFORMATION
  Report Type: Spontaneous
  Country: US (occurrence: US)
  Receive Date: 20250123
  Receipt Date: 20250123
  Transmission Date: 20250408
  Serious: No
  Sender: INCYTE
  Company Number: US-INCYTE CORPORATION-2025IN000278

PATIENT

DRUGS (3)
  1. JAKAFI [Suspect]
     Active Substance: RUXOLITINIB
     Dosage: 10 MILLIGRAM, BID
     Route: 048
  2. ASCORBIC ACID [Suspect]
     Active Substance: ASCORBIC ACID
     Indication: Product used for unknown indication
     Route: 065
  3. PHYTONADIONE [Suspect]
     Active Substance: PHYTONADIONE
     Indication: Product used for unknown indication
     Route: 065

REACTIONS (1)
  - Flushing [Unknown]
